FAERS Safety Report 5133592-8 (Version None)
Quarter: 2006Q4

REPORT INFORMATION
  Report Type: 
  Country: None (occurrence: None)
  Receive Date: 20061024
  Receipt Date: 20061011
  Transmission Date: 20070319
  Serious: Yes (Death, Hospitalization)
  Sender: FDA-Public Use
  Company Number: PHBS2006JP15887

PATIENT
  Age: 59 Year
  Sex: Female

DRUGS (1)
  1. CYCLOSPORINE [Suspect]
     Indication: RENAL TRANSPLANT
     Dosage: 75 MG/D
     Route: 065
     Dates: start: 19940101

REACTIONS (5)
  - COLON CANCER [None]
  - MELAENA [None]
  - METASTASES TO LIVER [None]
  - RENAL FAILURE [None]
  - SURGERY [None]
